FAERS Safety Report 15221378 (Version 1)
Quarter: 2018Q3

REPORT INFORMATION
  Report Type: Spontaneous
  Country: ES (occurrence: ES)
  Receive Date: 20180731
  Receipt Date: 20180731
  Transmission Date: 20181010
  Serious: Yes (Hospitalization, Other)
  Sender: FDA-Public Use
  Company Number: PHHY2018ES041086

PATIENT
  Age: 74 Year
  Sex: Male

DRUGS (2)
  1. IMATINIB [Suspect]
     Active Substance: IMATINIB
     Indication: CHRONIC MYELOID LEUKAEMIA
     Dosage: 400 MG, QD
     Route: 065
  2. COUMARIN [Concomitant]
     Active Substance: COUMARIN
     Indication: ANTIPLATELET THERAPY
     Route: 065

REACTIONS (7)
  - Homans^ sign positive [Unknown]
  - Deep vein thrombosis [Unknown]
  - Pain in extremity [Unknown]
  - Interstitial lung disease [Recovered/Resolved]
  - Computerised tomogram thorax abnormal [Recovered/Resolved]
  - Pleural effusion [Recovered/Resolved]
  - Arrhythmia [Unknown]

NARRATIVE: CASE EVENT DATE: 2016
